FAERS Safety Report 8740300 (Version 2)
Quarter: 2013Q4

REPORT INFORMATION
  Report Type: Spontaneous
  Country: US (occurrence: US)
  Receive Date: 20120823
  Receipt Date: 20131101
  Transmission Date: 20140711
  Serious: No
  Sender: FDA-Public Use
  Company Number: US-009507513-1208USA003356

PATIENT
  Age: 55 Year
  Sex: Female

DRUGS (3)
  1. VICTRELIS [Suspect]
     Indication: HEPATITIS C
     Dosage: 800 MG, Q8H
     Route: 048
  2. REBETOL [Suspect]
     Route: 048
  3. PEGASYS [Suspect]

REACTIONS (3)
  - Pain [Unknown]
  - Thirst [Unknown]
  - Visual impairment [Unknown]
